FAERS Safety Report 11010409 (Version 3)
Quarter: 2015Q2

REPORT INFORMATION
  Report Type: Spontaneous
  Country: ES (occurrence: ES)
  Receive Date: 20150410
  Receipt Date: 20150505
  Transmission Date: 20150821
  Serious: Yes (Other)
  Sender: FDA-Public Use
  Company Number: ES-GLAXOSMITHKLINE-ES2015047489

PATIENT
  Age: 69 Year
  Sex: Male

DRUGS (5)
  1. DUODART [Suspect]
     Active Substance: DUTASTERIDE\TAMSULOSIN
     Indication: BENIGN PROSTATIC HYPERPLASIA
     Dosage: INTAKE WHEN GOING TO BED
     Route: 048
     Dates: start: 201403, end: 201407
  2. CANDESARTAN/HIDROCLOROTIAZIDA [Concomitant]
     Dosage: 1 DF, QD
     Route: 048
     Dates: start: 20100608
  3. ACOVIL [Concomitant]
     Active Substance: PHENIRAMINE
     Dosage: 10 MG, QD
     Route: 048
     Dates: start: 20100608
  4. METFORMIN [Concomitant]
     Active Substance: METFORMIN HYDROCHLORIDE
     Route: 048
     Dates: start: 20100604
  5. NEXIUM [Concomitant]
     Active Substance: ESOMEPRAZOLE MAGNESIUM
     Dosage: 20 MG, QD
     Route: 048
     Dates: start: 20110301

REACTIONS (2)
  - Urticaria [Recovered/Resolved]
  - Toxic skin eruption [Recovered/Resolved]

NARRATIVE: CASE EVENT DATE: 201403
